FAERS Safety Report 9894871 (Version 3)
Quarter: 2014Q2

REPORT INFORMATION
  Report Type: Spontaneous
  Country: US (occurrence: US)
  Receive Date: 20140213
  Receipt Date: 20140404
  Transmission Date: 20141212
  Serious: No
  Sender: FDA-Public Use
  Company Number: US-009507513-1402USA006732

PATIENT
  Age: 77 Year
  Sex: Female
  Weight: 65.76 kg

DRUGS (2)
  1. OXYTROL FOR WOMEN [Suspect]
     Indication: MICTURITION URGENCY
     Dosage: UNK, Q4D
     Route: 062
     Dates: start: 20131229, end: 20140124
  2. OXYTROL FOR WOMEN [Suspect]
     Dosage: UNK, Q4D
     Route: 062
     Dates: start: 20131229, end: 20140124

REACTIONS (5)
  - Skin irritation [Recovered/Resolved]
  - Application site pain [Unknown]
  - Rash [Recovered/Resolved]
  - Erythema [Recovering/Resolving]
  - Product adhesion issue [Unknown]
